FAERS Safety Report 9811738 (Version 2)
Quarter: 2014Q4

REPORT INFORMATION
  Report Type: Spontaneous
  Country: US (occurrence: US)
  Receive Date: 20140110
  Receipt Date: 20141114
  Transmission Date: 20150529
  Serious: Yes (Other)
  Sender: FDA-Public Use
  Company Number: US-SANOFI-AVENTIS-2013SA066905

PATIENT
  Age: 52 Year

DRUGS (4)
  1. PLAVIX [Suspect]
     Active Substance: CLOPIDOGREL BISULFATE
     Indication: MYOCARDIAL INFARCTION
     Route: 065
     Dates: start: 201002, end: 20120713
  2. ASPIRIN. [Suspect]
     Active Substance: ASPIRIN
     Indication: STENT PLACEMENT
     Route: 065
  3. PLAVIX [Suspect]
     Active Substance: CLOPIDOGREL BISULFATE
     Indication: STENT PLACEMENT
     Route: 065
     Dates: start: 201002, end: 20120713
  4. ASPIRIN. [Suspect]
     Active Substance: ASPIRIN
     Indication: STENT PLACEMENT
     Route: 065
     Dates: start: 201002, end: 201202

REACTIONS (6)
  - Brain injury [Unknown]
  - Gastrointestinal haemorrhage [Not Recovered/Not Resolved]
  - Cerebral haemorrhage [Unknown]
  - Memory impairment [Unknown]
  - Disturbance in attention [Unknown]
  - Depression [Unknown]

NARRATIVE: CASE EVENT DATE: 20120713
